FAERS Safety Report 21109240 (Version 1)
Quarter: 2022Q3

REPORT INFORMATION
  Report Type: Spontaneous
  Country: US (occurrence: US)
  Receive Date: 20220721
  Receipt Date: 20220721
  Transmission Date: 20221027
  Serious: No
  Sender: FDA-Public Use
  Company Number: US-JNJFOC-20220725329

PATIENT
  Sex: Female
  Weight: 59.020 kg

DRUGS (9)
  1. RISPERDAL CONSTA [Suspect]
     Active Substance: RISPERIDONE
     Indication: Schizoaffective disorder
     Route: 065
     Dates: start: 202106
  2. RISPERDAL CONSTA [Suspect]
     Active Substance: RISPERIDONE
  3. RISPERDAL CONSTA [Suspect]
     Active Substance: RISPERIDONE
  4. RISPERDAL CONSTA [Suspect]
     Active Substance: RISPERIDONE
  5. HALOPERIDOL [Concomitant]
     Active Substance: HALOPERIDOL
  6. LITHIUM CARBONATE [Concomitant]
     Active Substance: LITHIUM CARBONATE
  7. RISPERIDONE [Concomitant]
     Active Substance: RISPERIDONE
  8. COGENTIN [Concomitant]
     Active Substance: BENZTROPINE MESYLATE
  9. DIPHENHYDRAMINE [Concomitant]
     Active Substance: DIPHENHYDRAMINE

REACTIONS (1)
  - Injection site mass [Unknown]
